FAERS Safety Report 5743390-X (Version None)
Quarter: 2008Q2

REPORT INFORMATION
  Report Type: 
  Country: None (occurrence: None)
  Receive Date: 20080515
  Receipt Date: 20080515
  Transmission Date: 20081010
  Serious: Yes (Other)
  Sender: FDA-Public Use
  Company Number: None

PATIENT
  Sex: Female

DRUGS (13)
  1. CHANTIX [Suspect]
     Indication: SMOKING CESSATION THERAPY
     Dosage: 0.5MG STARTER PACK PO 1MG BID PO
     Route: 048
     Dates: start: 20080202, end: 20080509
  2. CARISOPRODOL [Concomitant]
  3. CYMBALTA [Concomitant]
  4. RANITIDINE [Concomitant]
  5. PLAVIX [Concomitant]
  6. LIPITOR [Concomitant]
  7. METFORMIN HCL [Concomitant]
  8. ZOLPIDEM [Concomitant]
  9. ACETAMINOPHEN AND HYDROCODONE BITARTRATE [Concomitant]
  10. LORAZEPAM [Concomitant]
  11. COMBIVENT [Concomitant]
  12. FLUTICASONE PROPIONATE [Concomitant]
  13. ADVAIR DISKUS 100/50 [Concomitant]

REACTIONS (11)
  - ABNORMAL DREAMS [None]
  - AFFECTIVE DISORDER [None]
  - ANGER [None]
  - ANXIETY [None]
  - CRYING [None]
  - DEPRESSION [None]
  - FEELING ABNORMAL [None]
  - INSOMNIA [None]
  - MENTAL DISORDER [None]
  - NERVOUSNESS [None]
  - VIOLENCE-RELATED SYMPTOM [None]
